FAERS Safety Report 17757290 (Version 1)
Quarter: 2020Q2

REPORT INFORMATION
  Report Type: Report from Study
  Country: CO (occurrence: CO)
  Receive Date: 20200507
  Receipt Date: 20200507
  Transmission Date: 20200714
  Serious: Yes (Hospitalization)
  Sender: FDA-Public Use
  Company Number: NVSC2018CO003720

PATIENT
  Sex: Female

DRUGS (2)
  1. JAKAVI [Suspect]
     Active Substance: RUXOLITINIB
     Indication: MYELOFIBROSIS
     Dosage: 2 DF, QD (5 MG)
     Route: 065
  2. DEFERASIROX. [Suspect]
     Active Substance: DEFERASIROX
     Indication: MYELOFIBROSIS
     Dosage: 2 DF, QD (500 MG)
     Route: 065

REACTIONS (1)
  - Pain in extremity [Unknown]
